FAERS Safety Report 24448861 (Version 1)
Quarter: 2024Q4

REPORT INFORMATION
  Report Type: Spontaneous
  Country: US (occurrence: US)
  Receive Date: 20241017
  Receipt Date: 20241017
  Transmission Date: 20250114
  Serious: No
  Sender: BOEHRINGER INGELHEIM
  Company Number: US-BoehringerIngelheim-2024-BI-057359

PATIENT
  Age: 4 Year
  Sex: Female

DRUGS (1)
  1. MELOXICAM [Suspect]
     Active Substance: MELOXICAM
     Indication: Product used for unknown indication
     Dosage: 15 MG/ML, 0,2MG OF MELOXICAM IN METACAM  1,5 MG/ML
     Route: 048
     Dates: start: 20240708

REACTIONS (3)
  - Cough [Recovered/Resolved]
  - Accidental exposure to product by child [Unknown]
  - Vomiting [Recovered/Resolved]

NARRATIVE: CASE EVENT DATE: 20240101
